FAERS Safety Report 5377607-0 (Version None)
Quarter: 2007Q3

REPORT INFORMATION
  Report Type: 
  Country: None (occurrence: None)
  Receive Date: 20070703
  Receipt Date: 20070622
  Transmission Date: 20080115
  Serious: Yes (Hospitalization)
  Sender: FDA-Public Use
  Company Number: AU-PFIZER INC-2007041124

PATIENT
  Sex: Male

DRUGS (4)
  1. SUTENT [Suspect]
     Indication: RENAL CELL CARCINOMA STAGE UNSPECIFIED
     Route: 048
     Dates: start: 20061030, end: 20070322
  2. KEPPRA [Concomitant]
     Route: 048
  3. CLEXANE [Concomitant]
     Route: 048
  4. DEXAMETHASONE 0.5MG TAB [Concomitant]
     Route: 048

REACTIONS (4)
  - HAEMORRHAGE INTRACRANIAL [None]
  - HEADACHE [None]
  - MALAISE [None]
  - SOMNOLENCE [None]
